FAERS Safety Report 8477720-5 (Version None)
Quarter: 2012Q2

REPORT INFORMATION
  Report Type: 
  Country: None (occurrence: None)
  Receive Date: 20120629
  Receipt Date: 20120621
  Transmission Date: 20120825
  Serious: Yes (Hospitalization)
  Sender: FDA-Public Use
  Company Number: US-BAYER-2011-091132

PATIENT
  Age: 28 Year
  Sex: Female
  Weight: 57.143 kg

DRUGS (6)
  1. DROSPIRENONE AND ETHINYL ESTRADIOL [Suspect]
     Indication: CONTRACEPTION
     Dosage: UNK
     Dates: start: 20090801, end: 20100901
  2. TRAZODONE HCL [Concomitant]
     Dosage: 150 MG, UNK
  3. CLONAZEPAM [Concomitant]
     Dosage: 1 MG, UNK
  4. PAROXETINE HCL [Concomitant]
     Dosage: 20 MG, UNK
  5. SENNA-GEN [Concomitant]
  6. HYDROXYZINE PAMOATE [Concomitant]
     Dosage: 50 MG, UNK

REACTIONS (7)
  - INJURY [None]
  - PAIN [None]
  - EMOTIONAL DISTRESS [None]
  - PSYCHOLOGICAL TRAUMA [None]
  - PULMONARY EMBOLISM [None]
  - ANXIETY [None]
  - POST-TRAUMATIC STRESS DISORDER [None]
